FAERS Safety Report 20878857 (Version 1)
Quarter: 2022Q2

REPORT INFORMATION
  Report Type: Spontaneous
  Country: US (occurrence: None)
  Receive Date: 20220526
  Receipt Date: 20220526
  Transmission Date: 20220720
  Serious: No
  Sender: FDA-Public Use
  Company Number: None

PATIENT
  Age: 72 Year
  Sex: Female
  Weight: 58.5 kg

DRUGS (4)
  1. PAXLOVID [Suspect]
     Active Substance: NIRMATRELVIR\RITONAVIR
     Indication: COVID-19
     Dosage: FREQUENCY : TWICE A DAY;?
     Route: 048
  2. Propranolol 10 mg 2x a day [Concomitant]
  3. L-Lyscine [Concomitant]
  4. Vit D-3 2000 unit [Concomitant]

REACTIONS (3)
  - Dysgeusia [None]
  - Headache [None]
  - Headache [None]

NARRATIVE: CASE EVENT DATE: 20220517
